FAERS Safety Report 21247903 (Version 1)
Quarter: 2022Q3

REPORT INFORMATION
  Report Type: Spontaneous
  Country: US (occurrence: None)
  Receive Date: 20220823
  Receipt Date: 20220823
  Transmission Date: 20221027
  Serious: Yes (Death, Hospitalization)
  Sender: FDA-Public Use
  Company Number: None

PATIENT
  Sex: Male
  Weight: 18 kg

DRUGS (2)
  1. CYCLOPHOSPHAMIDE [Suspect]
     Active Substance: CYCLOPHOSPHAMIDE
     Dates: end: 20220614
  2. THIOTEPA [Suspect]
     Active Substance: THIOTEPA
     Dates: end: 20220614

REACTIONS (17)
  - Pyrexia [None]
  - Septic shock [None]
  - Alpha haemolytic streptococcal infection [None]
  - Respiratory distress [None]
  - Engraftment syndrome [None]
  - Hypercapnia [None]
  - Airway peak pressure increased [None]
  - Acute respiratory distress syndrome [None]
  - Fibrosis [None]
  - Bronchiectasis [None]
  - Hypoventilation [None]
  - Haemodynamic instability [None]
  - Inflammatory marker increased [None]
  - Acute respiratory failure [None]
  - Cardiac failure [None]
  - Hypotension [None]
  - Bacteraemia [None]

NARRATIVE: CASE EVENT DATE: 20220813
